FAERS Safety Report 23966636 (Version 1)
Quarter: 2024Q2

REPORT INFORMATION
  Report Type: Spontaneous
  Country: PL (occurrence: PL)
  Receive Date: 20240612
  Receipt Date: 20240612
  Transmission Date: 20240716
  Serious: Yes (Other)
  Sender: FDA-Public Use
  Company Number: PL-002147023-NVSC2024PL119332

PATIENT
  Age: 57 Year
  Sex: Female

DRUGS (6)
  1. RIBOCICLIB [Suspect]
     Active Substance: RIBOCICLIB
     Indication: Breast cancer
     Dosage: 600 MG (3 TABLETS A 200MG FOR 21 DAYS, THEN 7 DAYS BREAK)
     Route: 065
     Dates: start: 20230525
  2. RIBOCICLIB [Suspect]
     Active Substance: RIBOCICLIB
     Dosage: UNK (12TH CYCLE)
     Route: 065
     Dates: start: 20240517
  3. LETROZOLE [Suspect]
     Active Substance: LETROZOLE
     Indication: Product used for unknown indication
     Dosage: 2.5 MG (1X1 TABLET)
     Route: 065
     Dates: start: 20230525
  4. LETROZOLE [Suspect]
     Active Substance: LETROZOLE
     Dosage: UNK (12TH CYCLE)
     Route: 065
     Dates: start: 20240517
  5. ZOLEDRONIC ACID [Suspect]
     Active Substance: ZOLEDRONIC ACID
     Indication: Product used for unknown indication
     Dosage: UNK
     Route: 065
     Dates: start: 20230525
  6. ZOLEDRONIC ACID [Suspect]
     Active Substance: ZOLEDRONIC ACID
     Dosage: UNK
     Route: 065
     Dates: start: 20240517

REACTIONS (1)
  - Neutropenia [Unknown]
